FAERS Safety Report 5747886-6 (Version None)
Quarter: 2008Q2

REPORT INFORMATION
  Report Type: 
  Country: None (occurrence: None)
  Receive Date: 20080523
  Receipt Date: 20080513
  Transmission Date: 20081010
  Serious: Yes (Death, Hospitalization)
  Sender: FDA-Public Use
  Company Number: ZW-GILEAD-2007-0012640

PATIENT
  Sex: Female

DRUGS (18)
  1. TENOFOVIR DISOPROXIL FUMARATE [Suspect]
     Indication: HIV INFECTION
     Dates: start: 20030929, end: 20070405
  2. TENOFOVIR DISOPROXIL FUMARATE [Suspect]
     Dates: start: 20070523, end: 20070630
  3. NEVIRAPINE [Concomitant]
     Dates: start: 20070407
  4. COMBIVIR [Concomitant]
     Indication: HIV INFECTION
     Dates: start: 20030929, end: 20070415
  5. COMBIVIR [Concomitant]
     Dates: start: 20070523
  6. FLUCONAZOLE [Concomitant]
     Indication: MENINGITIS CRYPTOCOCCAL
     Dates: start: 20031006, end: 20070809
  7. FLUCONAZOLE [Concomitant]
     Dates: start: 20070504
  8. RIFAMPICIN [Concomitant]
     Indication: TUBERCULOSIS
     Dates: start: 20070523, end: 20070809
  9. ETHAMBUTOL HYDROCHLORIDE [Concomitant]
  10. PYRAZINAMIDE [Concomitant]
     Indication: TUBERCULOSIS
     Dates: start: 20070523, end: 20070809
  11. ISONIAZID [Concomitant]
     Indication: TUBERCULOSIS
     Dates: start: 20070523, end: 20070809
  12. CEFTRIAXONE [Concomitant]
     Dates: start: 20070628, end: 20070701
  13. ACETAMINOPHEN [Concomitant]
     Dates: start: 20070630, end: 20070710
  14. FUROSEMIDE [Concomitant]
     Dates: start: 20070702
  15. POTASSIUM CHLORIDE [Concomitant]
     Dates: start: 20070712
  16. NIFEDIPINE [Concomitant]
     Dates: start: 20070715
  17. KALETRA [Concomitant]
     Dates: start: 20070407
  18. DIDANOSINE [Concomitant]
     Dates: start: 20070407

REACTIONS (1)
  - RENAL FAILURE [None]
